FAERS Safety Report 20332635 (Version 2)
Quarter: 2022Q1

REPORT INFORMATION
  Report Type: Spontaneous
  Country: JP (occurrence: JP)
  Receive Date: 20220113
  Receipt Date: 20220118
  Transmission Date: 20220423
  Serious: Yes (Life-Threatening, Hospitalization, Other)
  Sender: FDA-Public Use
  Company Number: JP-PFIZER INC-202200000050

PATIENT
  Age: 69 Year
  Sex: Female

DRUGS (2)
  1. GEMCITABINE HYDROCHLORIDE [Suspect]
     Active Substance: GEMCITABINE HYDROCHLORIDE
     Indication: Bladder cancer stage II
     Dosage: 1000 MG/M2, CYCLIC (ON 1ST ,8TH AND 15TH DAY)
  2. CISPLATIN [Suspect]
     Active Substance: CISPLATIN
     Indication: Bladder cancer stage II
     Dosage: 70 MG/M2, CYCLIC (ON DAY 2 FOR EACH 28 DAYS)

REACTIONS (5)
  - Thrombocytopenia [Recovering/Resolving]
  - Leukopenia [Recovering/Resolving]
  - Anaemia [Recovering/Resolving]
  - Myelosuppression [Recovering/Resolving]
  - Thrombocytosis [Recovering/Resolving]
